FAERS Safety Report 25069055 (Version 1)
Quarter: 2025Q1

REPORT INFORMATION
  Report Type: Report from Study
  Country: CN (occurrence: CN)
  Receive Date: 20250312
  Receipt Date: 20250312
  Transmission Date: 20250409
  Serious: Yes (Other)
  Sender: ALEXION PHARMACEUTICALS
  Company Number: CN-ASTRAZENECA-202503GLO002205CN

PATIENT
  Age: 8 Year

DRUGS (6)
  1. SELUMETINIB [Suspect]
     Active Substance: SELUMETINIB
     Dosage: 20 MILLIGRAM, QD
     Route: 065
  2. SELUMETINIB [Suspect]
     Active Substance: SELUMETINIB
     Dosage: 20 MILLIGRAM, BID
     Route: 065
  3. SELUMETINIB [Suspect]
     Active Substance: SELUMETINIB
     Dosage: 10 MILLIGRAM, BID
     Route: 065
  4. SELUMETINIB [Suspect]
     Active Substance: SELUMETINIB
     Dosage: 20 MILLIGRAM, QD
     Route: 065
  5. SELUMETINIB [Suspect]
     Active Substance: SELUMETINIB
     Dosage: 20 MILLIGRAM, BID
     Route: 065
  6. Compound chloramphenicol [Concomitant]
     Route: 065

REACTIONS (1)
  - Myocardial necrosis marker increased [Recovered/Resolved]
